FAERS Safety Report 4313526-6 (Version None)
Quarter: 2004Q1

REPORT INFORMATION
  Report Type: 
  Country: None (occurrence: None)
  Receive Date: 20040308
  Receipt Date: 20031219
  Transmission Date: 20041129
  Serious: Yes (Hospitalization)
  Sender: FDA-Public Use
  Company Number: GB-GLAXOSMITHKLINE-B0318240A

PATIENT
  Age: 69 Year
  Sex: Male
  Weight: 72.3 kg

DRUGS (1)
  1. SALMETEROL/FLUTICASONE PROPIONATE 50/500UG [Suspect]
     Indication: CHRONIC OBSTRUCTIVE AIRWAYS DISEASE
     Route: 055
     Dates: start: 20010829

REACTIONS (8)
  - ATRIAL FIBRILLATION [None]
  - BLOOD PRESSURE SYSTOLIC INCREASED [None]
  - CHEST PAIN [None]
  - CORONARY ARTERY DISEASE [None]
  - CORONARY ARTERY REOCCLUSION [None]
  - MYOCARDIAL ISCHAEMIA [None]
  - OXYGEN SATURATION DECREASED [None]
  - SUBDURAL HAEMATOMA [None]
